FAERS Safety Report 9000070 (Version 1)
Quarter: 2013Q1

REPORT INFORMATION
  Report Type: Spontaneous
  Country: CL (occurrence: CL)
  Receive Date: 20130102
  Receipt Date: 20130102
  Transmission Date: 20140127
  Serious: Yes (Other)
  Sender: FDA-Public Use
  Company Number: CL-BRISTOL-MYERS SQUIBB COMPANY-17234691

PATIENT
  Age: 39 Year
  Sex: Female

DRUGS (2)
  1. IPILIMUMAB [Suspect]
     Indication: METASTATIC MALIGNANT MELANOMA
     Dosage: NO OF INF:4?LAST INF:28NOV12
  2. DEXAMETHASONE [Suspect]
     Indication: SUPPORTIVE CARE
     Dates: start: 201209

REACTIONS (2)
  - Frequent bowel movements [Recovering/Resolving]
  - Myopathy [Recovering/Resolving]
